FAERS Safety Report 8984331 (Version 2)
Quarter: 2013Q1

REPORT INFORMATION
  Report Type: Spontaneous
  Country: IT (occurrence: IT)
  Receive Date: 20121226
  Receipt Date: 20130207
  Transmission Date: 20140127
  Serious: Yes (Other)
  Sender: FDA-Public Use
  Company Number: IT-PFIZER INC-2012311745

PATIENT
  Age: 80 Year
  Sex: Female

DRUGS (7)
  1. CORDARONE [Suspect]
     Indication: ATRIAL FIBRILLATION
     Dosage: 200 MG, UNK
     Route: 048
     Dates: start: 20120101, end: 20121123
  2. PANTOPAN [Interacting]
     Indication: PRODUCT USED FOR UNKNOWN INDICATION
     Dosage: 20 MG, UNK
     Route: 048
     Dates: start: 20120101, end: 20121123
  3. COUMADIN [Interacting]
     Indication: ATRIAL FIBRILLATION
     Dosage: 5 MG, AS NEEDED
     Route: 048
     Dates: start: 20120101, end: 20121121
  4. TRIATEC [Concomitant]
     Dosage: 5 MG, UNK
  5. TORVAST [Concomitant]
     Dosage: 20 MG, UNK
  6. LYRICA [Concomitant]
     Dosage: 150 MG, UNK
  7. MONOKET [Concomitant]
     Dosage: 20 MG, UNK

REACTIONS (4)
  - Drug interaction [Unknown]
  - Haematoma [Unknown]
  - International normalised ratio increased [Unknown]
  - Contusion [Unknown]
